FAERS Safety Report 6833464-4 (Version None)
Quarter: 2010Q3

REPORT INFORMATION
  Report Type: 
  Country: None (occurrence: None)
  Receive Date: 20100712
  Receipt Date: 20070402
  Transmission Date: 20110219
  Serious: No
  Sender: FDA-Public Use
  Company Number: US-PFIZER INC-2007025081

PATIENT
  Sex: Female
  Weight: 63.5 kg

DRUGS (2)
  1. CHANTIX [Suspect]
     Indication: SMOKING CESSATION THERAPY
     Route: 048
     Dates: start: 20070318
  2. GLIMEPIRIDE [Concomitant]
     Indication: DIABETES MELLITUS

REACTIONS (5)
  - ASTHENOPIA [None]
  - DYSKINESIA [None]
  - INSOMNIA [None]
  - NIGHTMARE [None]
  - THINKING ABNORMAL [None]
